FAERS Safety Report 24601862 (Version 1)
Quarter: 2024Q4

REPORT INFORMATION
  Report Type: Other
  Country: GB (occurrence: GB)
  Receive Date: 20241111
  Receipt Date: 20241111
  Transmission Date: 20250114
  Serious: Yes (Other)
  Sender: GLENMARK
  Company Number: GB-MHRA-TPP15741422C9111963YC1730124467509

PATIENT

DRUGS (25)
  1. MONTELUKAST SODIUM [Suspect]
     Active Substance: MONTELUKAST SODIUM
     Indication: Ill-defined disorder
     Dosage: 10 MILLIGRAM, QD (ONE TO BE TAKEN DAILY), FORMULATION: TABLET
     Route: 065
     Dates: start: 20240620
  2. CLINDAMYCIN [Concomitant]
     Active Substance: CLINDAMYCIN
     Indication: Ill-defined disorder
     Dosage: UNK UNK, QID, (TAKE TWO FOUR TIMES A DAY)
     Route: 065
     Dates: start: 20240808, end: 20240815
  3. DOXYCYCLINE [Concomitant]
     Active Substance: DOXYCYCLINE
     Indication: Ill-defined disorder
     Dosage: UNK, (TWO NOW THEN ONE DAILY)
     Route: 065
     Dates: start: 20240827, end: 20240903
  4. MOMETASONE [Concomitant]
     Active Substance: MOMETASONE
     Indication: Ill-defined disorder
     Dosage: 2 DOSAGE FORM, OD (SPRAY TWICE INTO EACH NOSTRIL ONCE A DAY  )
     Route: 045
     Dates: start: 20240923, end: 20241028
  5. MINERAL OIL\PARAFFIN [Concomitant]
     Active Substance: MINERAL OIL\PARAFFIN
     Indication: Ill-defined disorder
     Dosage: UNK ((CONSIDER OTC IF APPLICABLE) APPLY TO AFFECTED ... )
     Route: 065
     Dates: start: 20241015
  6. BISOPROLOL [Concomitant]
     Active Substance: BISOPROLOL\BISOPROLOL FUMARATE
     Indication: Heart rate abnormal
     Dosage: 1 DOSAGE FORM, QD (TAKE ONE DAILY FOR HEART RATE CONTROL - TARGET)
     Route: 065
     Dates: start: 20231128
  7. CEFACLOR [Concomitant]
     Active Substance: CEFACLOR
     Indication: Ill-defined disorder
     Dosage: UNK, (ONE TO BE TAKEN TWICE A DAY)
     Route: 065
     Dates: start: 20211018
  8. APIXABAN [Concomitant]
     Active Substance: APIXABAN
     Indication: Ill-defined disorder
     Dosage: UNK UNK, BID, (TAKE ONE TWICE DAILY)
     Route: 065
     Dates: start: 20211018
  9. EASYHALER [Concomitant]
     Indication: Ill-defined disorder
     Dosage: 1 DOSAGE FORM, PRN (INHALE 1 DOSE AS NEEDED  )
     Dates: start: 20211018
  10. EZETIMIBE [Concomitant]
     Active Substance: EZETIMIBE
     Indication: Ill-defined disorder
     Dosage: UNK UNK, QD, (TAKE ONE DAILY)
     Route: 065
     Dates: start: 20211018
  11. FUROSEMIDE [Concomitant]
     Active Substance: FUROSEMIDE
     Indication: Ill-defined disorder
     Dosage: UNK, AM, (TAKE ONE IN THE MORNING)
     Route: 065
     Dates: start: 20211018
  12. NITROGLYCERIN [Concomitant]
     Active Substance: NITROGLYCERIN
     Indication: Ill-defined disorder
     Dosage: UNK (SPRAY ONE OR TWO PUFFS UNDER THE TONGUE WHEN RE...  )
     Route: 065
     Dates: start: 20211018
  13. HUMULIN L [Concomitant]
     Active Substance: INSULIN HUMAN
     Indication: Ill-defined disorder
     Dosage: UNK (USE AS DIRECTED  )
     Route: 065
     Dates: start: 20211018
  14. Microlet [Concomitant]
     Indication: Ill-defined disorder
     Dosage: UNK (AS DIRECTED )
     Route: 065
     Dates: start: 20211018
  15. NICORANDIL [Concomitant]
     Active Substance: NICORANDIL
     Indication: Ill-defined disorder
     Dosage: 30 MILLIGRAM, BID (TAKE ONE TABLET TWICE DAILY (TOTAL DOSE 30MG BD)  )
     Route: 065
     Dates: start: 20211018
  16. PANTOPRAZOLE [Concomitant]
     Active Substance: PANTOPRAZOLE
     Indication: Ill-defined disorder
     Dosage: 1 DOSAGE FORM, BID (TAKE ONE TABLET TWICE A DAY  )
     Route: 065
     Dates: start: 20211018
  17. HYDROXOCOBALAMIN [Concomitant]
     Active Substance: HYDROXOCOBALAMIN
     Indication: Ill-defined disorder
     Dosage: UNK (ONE 1MG/1ML INJECTON TO BE GIVEN INTRAMUSCULAR ...  )
     Route: 030
     Dates: start: 20211020
  18. DOCUSATE SODIUM [Concomitant]
     Active Substance: DOCUSATE SODIUM
     Indication: Ill-defined disorder
     Dosage: 2 DOSAGE FORM, BID (~TAKE TWO CAPSULES TWICE DAILY  )
     Route: 065
     Dates: start: 20220525
  19. BUDESONIDE\FORMOTEROL [Concomitant]
     Active Substance: BUDESONIDE\FORMOTEROL
     Indication: Ill-defined disorder
     Dosage: UNK UNK, BID (INHALE TWO PUFFS TWICE A DAY AND UP TO 8 PUFFS ...  )
     Route: 065
     Dates: start: 20220624
  20. COCODAMOL [Concomitant]
     Active Substance: ACETAMINOPHEN\CODEINE PHOSPHATE
     Indication: Ill-defined disorder
     Dosage: UNK UNK, QID (TAKE ONE OR TWO CAPSULES UP TO FOUR TIMES DAILY...  )
     Route: 065
     Dates: start: 20230525
  21. CYCLIZINE [Concomitant]
     Active Substance: CYCLIZINE
     Indication: Ill-defined disorder
     Dosage: 1 DOSAGE FORM, TID (TAKE ONE TABLET UP TO MAXIMUM OF THREE TIMES DAILY  )
     Route: 065
     Dates: start: 20231005
  22. FOLIC ACID [Concomitant]
     Active Substance: FOLIC ACID
     Indication: Ill-defined disorder
     Dosage: UNK UNK, QD, (TAKE ONE DAILY  )
     Route: 065
     Dates: start: 20240202
  23. ALLOPURINOL [Concomitant]
     Active Substance: ALLOPURINOL
     Indication: Ill-defined disorder
     Dosage: UNK UNK, QD, (TAKE TWO DAILY)
     Route: 065
     Dates: start: 20240220
  24. MORPHINE SULFATE [Concomitant]
     Active Substance: MORPHINE SULFATE
     Indication: Ill-defined disorder
     Dosage: UNK (TAKE 2.5ML TO 5ML EVERY 4 HOURS ONLY WHEN REQUI...)
     Route: 065
     Dates: start: 20240319
  25. INCRUSE ELLIPTA [Concomitant]
     Active Substance: UMECLIDINIUM BROMIDE
     Indication: Ill-defined disorder
     Dosage: 1 DOSAGE FORM, QD (INHALE 1 DOSE DAILY  )
     Dates: start: 20240620

REACTIONS (1)
  - Depressed mood [Recovered/Resolved]
